FAERS Safety Report 10360361 (Version 3)
Quarter: 2014Q3

REPORT INFORMATION
  Report Type: Spontaneous
  Country: US (occurrence: US)
  Receive Date: 20140804
  Receipt Date: 20140822
  Transmission Date: 20150326
  Serious: Yes (Other)
  Sender: FDA-Public Use
  Company Number: US-BAYER-2014-110847

PATIENT
  Age: 53 Year
  Sex: Female
  Weight: 77.55 kg

DRUGS (4)
  1. CLARITIN [Concomitant]
     Active Substance: LORATADINE
  2. MIRENA [Suspect]
     Active Substance: LEVONORGESTREL
     Indication: CONTRACEPTION
     Dosage: 20 MCG/24HR, CONT
     Route: 015
     Dates: start: 20100401, end: 20140717
  3. MIRENA [Suspect]
     Active Substance: LEVONORGESTREL
     Indication: MENSTRUAL CYCLE MANAGEMENT
  4. ACYCLOVIR [ACICLOVIR SODIUM] [Concomitant]
     Dosage: 400 MG, BID
     Route: 048

REACTIONS (6)
  - Device difficult to use [None]
  - Vitamin B12 decreased [None]
  - Complication of device removal [None]
  - Device breakage [None]
  - Hypothyroidism [None]
  - Fatigue [None]

NARRATIVE: CASE EVENT DATE: 20140717
